FAERS Safety Report 17602232 (Version 1)
Quarter: 2020Q1

REPORT INFORMATION
  Report Type: Spontaneous
  Country: FR (occurrence: FR)
  Receive Date: 20200330
  Receipt Date: 20200330
  Transmission Date: 20200409
  Serious: Yes (Hospitalization)
  Sender: FDA-Public Use
  Company Number: FR-ELI_LILLY_AND_COMPANY-FR202003009677

PATIENT
  Sex: Male

DRUGS (3)
  1. ZYPADHERA [Suspect]
     Active Substance: OLANZAPINE PAMOATE
     Indication: PSYCHOTIC DISORDER
     Dosage: UNK, UNKNOWN
     Route: 030
     Dates: end: 20200217
  2. ZYPADHERA [Suspect]
     Active Substance: OLANZAPINE PAMOATE
     Indication: PSYCHOTIC DISORDER
     Dosage: UNK, UNKNOWN
     Route: 030
     Dates: end: 20200217
  3. ZYPADHERA [Suspect]
     Active Substance: OLANZAPINE PAMOATE
     Indication: PSYCHOTIC DISORDER
     Dosage: UNK, UNKNOWN
     Route: 030
     Dates: end: 20200217

REACTIONS (6)
  - Anxiety [Recovered/Resolved]
  - Agitation [Recovered/Resolved]
  - Sedation [Recovered/Resolved]
  - Orthostatic hypotension [Recovered/Resolved]
  - Dysarthria [Recovered/Resolved]
  - Somnolence [Recovered/Resolved]

NARRATIVE: CASE EVENT DATE: 201812
